FAERS Safety Report 14583611 (Version 1)
Quarter: 2018Q1

REPORT INFORMATION
  Report Type: Spontaneous
  Country: ES (occurrence: ES)
  Receive Date: 20180228
  Receipt Date: 20180228
  Transmission Date: 20180509
  Serious: Yes (Other)
  Sender: FDA-Public Use
  Company Number: ES-PFIZER INC-2018079825

PATIENT
  Age: 57 Year
  Sex: Male

DRUGS (1)
  1. VINCRISTINA PFIZER [Suspect]
     Active Substance: VINCRISTINE
     Dosage: 1 DF, CYCLIC (R-CHOP EVERY 21 DAYS)
     Route: 042
     Dates: start: 20180105

REACTIONS (1)
  - Neuropathy peripheral [Not Recovered/Not Resolved]

NARRATIVE: CASE EVENT DATE: 20180126
